FAERS Safety Report 10802930 (Version 4)
Quarter: 2015Q1

REPORT INFORMATION
  Report Type: Spontaneous
  Country: JP (occurrence: JP)
  Receive Date: 20150217
  Receipt Date: 20150324
  Transmission Date: 20150721
  Serious: No
  Sender: FDA-Public Use
  Company Number: JP-PFIZER INC-2015054412

PATIENT
  Age: 52 Year
  Sex: Female

DRUGS (5)
  1. VALPROATE [Concomitant]
     Active Substance: VALPROATE SODIUM
     Indication: BRAIN ABSCESS
     Dosage: UNK
  2. ROCEPHIN [Suspect]
     Active Substance: CEFTRIAXONE SODIUM
     Indication: BRAIN ABSCESS
     Dosage: UNK
     Route: 042
  3. ANAEMETRO [Suspect]
     Active Substance: METRONIDAZOLE
     Indication: BRAIN ABSCESS
     Dosage: 1500 MG, DAILY
     Route: 041
     Dates: start: 20150120
  4. VANCOMYCIN [Suspect]
     Active Substance: VANCOMYCIN
     Indication: BRAIN ABSCESS
     Dosage: UNK
     Route: 042
     Dates: start: 20150120
  5. NEXIUM [Suspect]
     Active Substance: ESOMEPRAZOLE MAGNESIUM
     Dosage: UNK

REACTIONS (2)
  - Platelet count decreased [Recovered/Resolved]
  - White blood cell count decreased [Recovered/Resolved]
